FAERS Safety Report 11286006 (Version 1)
Quarter: 2015Q3

REPORT INFORMATION
  Report Type: Spontaneous
  Country: US (occurrence: US)
  Receive Date: 20150721
  Receipt Date: 20150721
  Transmission Date: 20151125
  Serious: No
  Sender: FDA-Public Use
  Company Number: US-009507513-1507USA006486

PATIENT
  Age: 70 Year
  Sex: Female

DRUGS (3)
  1. BELSOMRA [Suspect]
     Active Substance: SUVOREXANT
     Dosage: 20 MG, AT NIGHT AS NEEDED
     Route: 048
     Dates: start: 20150710, end: 20150710
  2. BELSOMRA [Suspect]
     Active Substance: SUVOREXANT
     Indication: INSOMNIA
     Dosage: 20 MG, AT NIGHT AS NEEDED
     Route: 048
     Dates: start: 20150707, end: 20150707
  3. HYDROCODONE [Concomitant]
     Active Substance: HYDROCODONE
     Indication: ARTHRALGIA

REACTIONS (9)
  - Musculoskeletal pain [Recovering/Resolving]
  - Neck pain [Recovering/Resolving]
  - Middle insomnia [Unknown]
  - Neck pain [Unknown]
  - Head discomfort [Recovering/Resolving]
  - Somnolence [Unknown]
  - Musculoskeletal pain [Unknown]
  - Movement disorder [Unknown]
  - Movement disorder [Recovering/Resolving]

NARRATIVE: CASE EVENT DATE: 20150708
